FAERS Safety Report 12748805 (Version 1)
Quarter: 2016Q3

REPORT INFORMATION
  Report Type: Spontaneous
  Country: US (occurrence: US)
  Receive Date: 20160915
  Receipt Date: 20160915
  Transmission Date: 20161109
  Serious: No
  Sender: FDA-Public Use
  Company Number: US-OMEROS CORPORATION-2016OME00021

PATIENT
  Age: 72 Year

DRUGS (2)
  1. FLOMAX [Concomitant]
     Active Substance: TAMSULOSIN HYDROCHLORIDE
  2. OMIDRIA [Suspect]
     Active Substance: KETOROLAC\PHENYLEPHRINE
     Indication: CATARACT OPERATION
     Dosage: UNK, 1X/DAY
     Route: 031

REACTIONS (6)
  - Corneal oedema [Recovered/Resolved]
  - Sinus bradycardia [Recovered/Resolved]
  - Drug administration error [Recovered/Resolved]
  - Pupil fixed [Not Recovered/Not Resolved]
  - Anterior chamber disorder [Not Recovered/Not Resolved]
  - Intraocular pressure increased [Recovered/Resolved]
